FAERS Safety Report 12259371 (Version 1)
Quarter: 2016Q2

REPORT INFORMATION
  Report Type: Report from Study
  Country: US (occurrence: US)
  Receive Date: 20160412
  Receipt Date: 20160412
  Transmission Date: 20160815
  Serious: Yes (Hospitalization, Other)
  Sender: FDA-Public Use
  Company Number: ADR-2014-01947

PATIENT
  Age: 32 Year
  Sex: Female

DRUGS (4)
  1. CLONIDINE. [Suspect]
     Active Substance: CLONIDINE
     Dosage: 178.86 MCG/DAY
     Route: 037
  2. BACLOFEN. [Suspect]
     Active Substance: BACLOFEN
     Dosage: 214.63 MCG/DAY
     Route: 037
  3. BUPIVACAINE. [Suspect]
     Active Substance: BUPIVACAINE
     Dosage: 9.062 MG/DAY
     Route: 037
  4. DILAUDID [Suspect]
     Active Substance: HYDROMORPHONE HYDROCHLORIDE
     Dosage: 1.4309 MG/DAY
     Route: 037

REACTIONS (6)
  - Pain [Recovered/Resolved]
  - Staphylococcal infection [Recovered/Resolved]
  - Bacterial test positive [Recovered/Resolved]
  - Medical device site erythema [Recovered/Resolved]
  - Implant site extravasation [Recovered/Resolved]
  - Medical device site infection [Recovered/Resolved]
